FAERS Safety Report 9710118 (Version 2)
Quarter: 2013Q4

REPORT INFORMATION
  Report Type: Spontaneous
  Country: VE (occurrence: VE)
  Receive Date: 20131126
  Receipt Date: 20131126
  Transmission Date: 20140711
  Serious: Yes (Hospitalization, Other)
  Sender: FDA-Public Use
  Company Number: PHHY2013VE125774

PATIENT
  Age: 85 Year
  Sex: Male

DRUGS (7)
  1. FORADIL INHAL. CAPS. [Suspect]
     Indication: ASTHMA
     Dosage: 2 DF, QD
     Dates: end: 20131102
  2. FORADIL INHAL. CAPS. [Suspect]
     Indication: CHRONIC OBSTRUCTIVE PULMONARY DISEASE
  3. MIFLONIDE [Suspect]
     Indication: ASTHMA
     Dosage: 2 DF, QD
     Dates: end: 20131102
  4. MIFLONIDE [Suspect]
     Indication: CHRONIC OBSTRUCTIVE PULMONARY DISEASE
  5. COZAAR [Concomitant]
     Indication: HYPERTENSION
     Dosage: 50 MG, BID
     Route: 048
  6. COLYPAN [Concomitant]
     Indication: IRRITABLE BOWEL SYNDROME
     Dosage: 1 DF, Q12H
     Route: 048
  7. ESOMEPRAZOLE [Concomitant]
     Indication: GASTRIC DISORDER
     Dosage: 40 MG, DAILY
     Route: 048

REACTIONS (2)
  - Asthmatic crisis [Not Recovered/Not Resolved]
  - Chronic obstructive pulmonary disease [Unknown]
